FAERS Safety Report 4722264-7 (Version None)
Quarter: 2005Q3

REPORT INFORMATION
  Report Type: 
  Country: None (occurrence: None)
  Receive Date: 20050722
  Receipt Date: 20040924
  Transmission Date: 20060218
  Serious: No
  Sender: FDA-Public Use
  Company Number: US-GLAXOSMITHKLINE-A0527316A

PATIENT
  Age: 22 Month
  Sex: Male
  Weight: 11.4 kg

DRUGS (1)
  1. AVANDIA [Suspect]
     Indication: DRUG USE FOR UNKNOWN INDICATION
     Dosage: 4MG SINGLE DOSE
     Route: 048
     Dates: start: 20040924, end: 20040924

REACTIONS (2)
  - ACCIDENTAL EXPOSURE [None]
  - VOMITING [None]
